FAERS Safety Report 24745662 (Version 1)
Quarter: 2024Q4

REPORT INFORMATION
  Report Type: Spontaneous
  Country: US (occurrence: US)
  Receive Date: 20241218
  Receipt Date: 20241218
  Transmission Date: 20250115
  Serious: No
  Sender: SANOFI AVENTIS
  Company Number: US-SA-2024SA371143

PATIENT
  Age: 5 Year
  Sex: Male
  Weight: 14.55 kg

DRUGS (7)
  1. DUPIXENT [Suspect]
     Active Substance: DUPILUMAB
     Indication: Dermatitis atopic
     Dosage: 300 MG, Q4W
     Route: 058
  2. TACROLIMUS [Concomitant]
     Active Substance: TACROLIMUS
  3. CLOBETASOL [Concomitant]
     Active Substance: CLOBETASOL
  4. KETOCONAZOLE [Concomitant]
     Active Substance: KETOCONAZOLE
  5. HYDROXYZINE HYDROCHLORIDE [Concomitant]
     Active Substance: HYDROXYZINE HYDROCHLORIDE
  6. EUCRISA [Concomitant]
     Active Substance: CRISABOROLE
  7. BETAMETHASONE VALERATE [Concomitant]
     Active Substance: BETAMETHASONE VALERATE

REACTIONS (4)
  - Fear of injection [Unknown]
  - Skin swelling [Unknown]
  - Pruritus [Unknown]
  - Injection site pain [Unknown]

NARRATIVE: CASE EVENT DATE: 20240101
